FAERS Safety Report 8873149 (Version 1)
Quarter: 2012Q4

REPORT INFORMATION
  Report Type: 
  Country: CN (occurrence: CN)
  Receive Date: 20121030
  Receipt Date: 20121030
  Transmission Date: 20130627
  Serious: Yes (Hospitalization, Other)
  Sender: FDA-Public Use
  Company Number: CN-BAXTER-2012BAX020806

PATIENT
  Age: 59 Year
  Sex: Male
  Weight: 65 kg

DRUGS (4)
  1. CALCIUM CHLORIDE\DEXTROSE MONOHYDRATE\MAGNESIUM CHLORIDE\SODIUM CHLORIDE\SODIUM LACTATE [Suspect]
     Indication: END STAGE RENAL DISEASE (ESRD)
     Route: 033
  2. EPIAO [Concomitant]
     Indication: RENAL ANEMIA
     Dates: start: 20120927
  3. NIFEREX [Concomitant]
     Indication: RENAL ANEMIA
     Route: 048
     Dates: start: 20120927
  4. PRAZOSIN [Concomitant]
     Indication: DRUG USE FOR UNKNOWN INDICATION
     Route: 048
     Dates: start: 20120927

REACTIONS (3)
  - Pyrexia [Recovering/Resolving]
  - Peritonitis [Recovering/Resolving]
  - Implant site swelling [Recovering/Resolving]
